FAERS Safety Report 25023217 (Version 2)
Quarter: 2025Q1

REPORT INFORMATION
  Report Type: Spontaneous
  Country: US (occurrence: US)
  Receive Date: 20250228
  Receipt Date: 20250303
  Transmission Date: 20250409
  Serious: No
  Sender: Haleon PLC
  Company Number: US-HALEON-2230554

PATIENT
  Age: 60 Year
  Sex: Female

DRUGS (1)
  1. SENSODYNE FULL PROTECTION [Suspect]
     Active Substance: POTASSIUM NITRATE\SODIUM FLUORIDE
     Indication: Product used for unknown indication

REACTIONS (2)
  - Oral mucosal exfoliation [Not Recovered/Not Resolved]
  - Coating in mouth [Unknown]
